FAERS Safety Report 11990706 (Version 1)
Quarter: 2016Q1

REPORT INFORMATION
  Report Type: Spontaneous
  Country: US (occurrence: US)
  Receive Date: 20160202
  Receipt Date: 20160202
  Transmission Date: 20160526
  Serious: No
  Sender: FDA-Public Use
  Company Number: US-GALDERMA-US15000912

PATIENT
  Age: 15 Year
  Sex: Female

DRUGS (5)
  1. EPIDUO [Suspect]
     Active Substance: ADAPALENE\BENZOYL PEROXIDE
     Indication: ACNE
     Dosage: 0.1% / 2.5%
     Route: 061
     Dates: start: 20150217, end: 20150222
  2. CETAPHIL [Suspect]
     Active Substance: AVOBENZONE\OCTOCRYLENE\TRICLOSAN
     Indication: DRY SKIN PROPHYLAXIS
     Route: 061
     Dates: start: 201502, end: 201502
  3. NEUTROGENA ULTRA GENTLE FOAMING CLEANSER [Concomitant]
     Indication: THERAPEUTIC SKIN CARE TOPICAL
     Route: 061
     Dates: start: 20150217
  4. CLINDAMYCIN 1% [Concomitant]
     Indication: ACNE
     Dosage: 1%
     Route: 061
     Dates: start: 20150217
  5. AVEENO MOISTURIZER WITH UNKNOWN SPF [Concomitant]
     Route: 061

REACTIONS (5)
  - Chemical injury [Not Recovered/Not Resolved]
  - Activities of daily living impaired [Not Recovered/Not Resolved]
  - Skin fissures [Not Recovered/Not Resolved]
  - Skin burning sensation [Not Recovered/Not Resolved]
  - Dry skin [Not Recovered/Not Resolved]

NARRATIVE: CASE EVENT DATE: 201502
